FAERS Safety Report 7642137-X (Version None)
Quarter: 2011Q3

REPORT INFORMATION
  Report Type: 
  Country: None (occurrence: None)
  Receive Date: 20110727
  Receipt Date: 20110727
  Transmission Date: 20111222
  Serious: No
  Sender: FDA-Public Use
  Company Number: None

PATIENT
  Sex: Female

DRUGS (1)
  1. DEPO-PROVERA [Suspect]
     Indication: CONTRACEPTION
     Dosage: 150MG IM EVERY 12 WEEKS
     Route: 030
     Dates: start: 20010101, end: 20040101

REACTIONS (4)
  - MUSCLE SPASMS [None]
  - HEADACHE [None]
  - SKIN REACTION [None]
  - DIZZINESS [None]
